FAERS Safety Report 18833649 (Version 5)
Quarter: 2021Q3

REPORT INFORMATION
  Report Type: Other
  Country: GB (occurrence: GB)
  Receive Date: 20210203
  Receipt Date: 20210706
  Transmission Date: 20211014
  Serious: Yes (Death, Other)
  Sender: FDA-Public Use
  Company Number: GB-STRIDES ARCOLAB LIMITED-2021SP001319

PATIENT
  Sex: Male

DRUGS (20)
  1. SENNA [SENNA ALEXANDRINA] [Suspect]
     Active Substance: SENNA LEAF
     Indication: PRODUCT USED FOR UNKNOWN INDICATION
     Dosage: 7.5 MILLIGRAM EVERY 24 HOURS
     Route: 065
  2. ENTACAPONE. [Suspect]
     Active Substance: ENTACAPONE
     Indication: PRODUCT USED FOR UNKNOWN INDICATION
     Dosage: UNK
     Route: 065
  3. LEVOTHYROXINE SODIUM. [Suspect]
     Active Substance: LEVOTHYROXINE SODIUM
     Indication: PRODUCT USED FOR UNKNOWN INDICATION
     Dosage: 50 MICROGRAM, PER DAY
     Route: 065
  4. SENNA [SENNA ALEXANDRINA] [Suspect]
     Active Substance: SENNA LEAF
     Dosage: 25 MICROGRAM, 1X/DAY
     Route: 065
  5. TAMSULOSIN [Suspect]
     Active Substance: TAMSULOSIN
     Indication: PRODUCT USED FOR UNKNOWN INDICATION
     Dosage: 400 MICROGRAM, EVERY 24 HOUR
     Route: 065
  6. ALLOPURINOL. [Suspect]
     Active Substance: ALLOPURINOL
     Dosage: UNK, 1 QD
     Route: 065
  7. CO?CARELDOPA [Suspect]
     Active Substance: CARBIDOPA\LEVODOPA
     Indication: PRODUCT USED FOR UNKNOWN INDICATION
     Dosage: 1 DOSAGE FORM, EVERY 6 HRS (25/100 MG AND 12.5/50 MG, 4X / DAY (AT 8 AM, 12 PM,4 PM, 8 PM)
     Route: 065
  8. LEVOTHYROXINE SODIUM. [Suspect]
     Active Substance: LEVOTHYROXINE SODIUM
     Dosage: 25 MICROGRAM PER DAY
     Route: 065
  9. MACROGOL, SODIUM CHLORIDE, POTASSIUM CHLORIDE, SODIUM BICARBONATE [Suspect]
     Active Substance: POLYETHYLENE GLYCOL 3350\POTASSIUM CHLORIDE\SODIUM BICARBONATE\SODIUM CHLORIDE
     Indication: PRODUCT USED FOR UNKNOWN INDICATION
     Dosage: 1 DOSAGE FORM, EVERY 12 HRS 2X/ DAY
     Route: 065
  10. MIRTAZAPINE. [Suspect]
     Active Substance: MIRTAZAPINE
     Indication: PRODUCT USED FOR UNKNOWN INDICATION
     Dosage: 15 MILLIGRAM, EVERY 24 HOUR
     Route: 065
  11. COCODAMOL [Suspect]
     Active Substance: ACETAMINOPHEN\CODEINE PHOSPHATE
     Indication: PRODUCT USED FOR UNKNOWN INDICATION
     Dosage: 2 DOSAGE FORM, 15 MG/500 MG, 2 TABLETS EVERY 6 HRS PRN
     Route: 065
  12. LEVOTHYROXINE SODIUM. [Suspect]
     Active Substance: LEVOTHYROXINE SODIUM
     Dosage: 25 MICROGRAM PER DAY
     Route: 065
  13. LEVOTHYROXINE SODIUM. [Suspect]
     Active Substance: LEVOTHYROXINE SODIUM
     Dosage: 50 MICROGRAM, Q24H
     Route: 065
  14. COLECALCIFEROL [Suspect]
     Active Substance: CHOLECALCIFEROL
     Indication: PRODUCT USED FOR UNKNOWN INDICATION
     Dosage: 800 INTERNATIONAL UNIT, 24 HOUR (1X/DAY (FREQ:24 H, 800 UNITS, 1X / DAY)
     Route: 065
  15. MACROGOL, SODIUM CHLORIDE, POTASSIUM CHLORIDE, SODIUM BICARBONATE [Suspect]
     Active Substance: POLYETHYLENE GLYCOL 3350\POTASSIUM CHLORIDE\SODIUM BICARBONATE\SODIUM CHLORIDE
     Dosage: 2 DOSAGE FORM FOR ONE DAY 1 DF, BID
     Route: 065
  16. ONGENTYS [Suspect]
     Active Substance: OPICAPONE
     Indication: PARKINSON^S DISEASE
     Dosage: 50 MILLIGRAM, EVERY 24 HOUR (30 MINS PRE/POST EVENING LEVODOPA)
     Route: 065
     Dates: start: 2020
  17. ALLOPURINOL. [Suspect]
     Active Substance: ALLOPURINOL
     Indication: PRODUCT USED FOR UNKNOWN INDICATION
     Dosage: 300 MILLIGRAM, EVERY 24 HOUR
     Route: 065
  18. GABAPENTIN. [Suspect]
     Active Substance: GABAPENTIN
     Indication: PRODUCT USED FOR UNKNOWN INDICATION
     Dosage: 600 MILLIGRAM PER DAY, EVERY 8 HOUR (TABLET)
     Route: 065
  19. ADCAL D3 [Suspect]
     Active Substance: CALCIUM CARBONATE\CHOLECALCIFEROL
     Indication: PRODUCT USED FOR UNKNOWN INDICATION
     Dosage: 1 DOSAGE FORM 12 HOUR (1.5 G + 400 UNITS, 2X / DAY)
     Route: 065
  20. LEVOTHYROXINE SODIUM. [Suspect]
     Active Substance: LEVOTHYROXINE SODIUM
     Dosage: UNK, 1 QD
     Route: 065

REACTIONS (12)
  - Urinary retention [Fatal]
  - Hyponatraemia [Fatal]
  - Condition aggravated [Fatal]
  - Confusional state [Fatal]
  - Joint dislocation [Fatal]
  - Fall [Fatal]
  - Dyskinesia [Fatal]
  - Death [Fatal]
  - Orthostatic hypotension [Fatal]
  - Upper limb fracture [Fatal]
  - Agitation [Fatal]
  - Treatment noncompliance [Fatal]

NARRATIVE: CASE EVENT DATE: 2020
